FAERS Safety Report 8836183 (Version 2)
Quarter: 2012Q4

REPORT INFORMATION
  Report Type: 
  Country: FR (occurrence: FR)
  Receive Date: 20121011
  Receipt Date: 20121018
  Transmission Date: 20130627
  Serious: Yes (Hospitalization)
  Sender: FDA-Public Use
  Company Number: FR-ROXANE LABORATORIES, INC.-2012-EU-05060GD

PATIENT
  Age: 4 Month
  Sex: Female

DRUGS (1)
  1. CODEINE [Suspect]
     Indication: PAIN

REACTIONS (7)
  - Diffuse cutaneous mastocytosis [Unknown]
  - Anaphylactic shock [Unknown]
  - Urticaria [Unknown]
  - Blister [Unknown]
  - Diarrhoea [Unknown]
  - Pyrexia [Unknown]
  - Hypoalbuminaemia [Unknown]
